FAERS Safety Report 5810389-4 (Version None)
Quarter: 2008Q3

REPORT INFORMATION
  Report Type: 
  Country: None (occurrence: None)
  Receive Date: 20080715
  Receipt Date: 20080704
  Transmission Date: 20090109
  Serious: Yes (Other)
  Sender: FDA-Public Use
  Company Number: BR-ROCHE-574678

PATIENT
  Age: 41 Year
  Sex: Female
  Weight: 75 kg

DRUGS (5)
  1. RIVOTRIL [Suspect]
     Indication: ANXIETY
     Route: 048
     Dates: start: 20040101
  2. RIVOTRIL [Suspect]
     Route: 048
     Dates: start: 20040101
  3. EFFEXOR [Concomitant]
     Indication: DEPRESSION
     Dosage: OTHER INDICATIONS ANXIETY, BIPOLAR DISORDER
     Route: 048
  4. SERTRALINE [Concomitant]
     Indication: DEPRESSION
     Dosage: OTHER INDICATIONS: ANXIETY, BIPOLAR DISORDER
     Route: 048
  5. 1 CONCOMITANT DRUG [Concomitant]
     Indication: DEPRESSION
     Dosage: DRUG: LAMITOR; OTHER INDICATIONS: ANXIETY, BIPOLAR DISORDER
     Route: 048

REACTIONS (9)
  - CHEST DISCOMFORT [None]
  - CHOLECYSTECTOMY [None]
  - HEADACHE [None]
  - INFLUENZA [None]
  - INSOMNIA [None]
  - NO THERAPEUTIC RESPONSE [None]
  - PANCREATITIS [None]
  - PSEUDOCYST [None]
  - VASCULAR CALCIFICATION [None]
